FAERS Safety Report 23049603 (Version 1)
Quarter: 2023Q4

REPORT INFORMATION
  Report Type: Spontaneous
  Country: None (occurrence: ES)
  Receive Date: 20231010
  Receipt Date: 20231010
  Transmission Date: 20240109
  Serious: Yes (Other)
  Sender: FDA-Public Use
  Company Number: ES-B.Braun Medical Inc.-2146890

PATIENT
  Age: 37 Year
  Sex: Female

DRUGS (2)
  1. ACETAMINOPHEN [Suspect]
     Active Substance: ACETAMINOPHEN
     Indication: Surgery
  2. METAMIZOLE [Suspect]
     Active Substance: METAMIZOLE

REACTIONS (4)
  - Rash [None]
  - Face oedema [None]
  - Oropharyngeal pain [None]
  - Off label use [None]
